FAERS Safety Report 9128867 (Version 2)
Quarter: 2013Q1

REPORT INFORMATION
  Report Type: Spontaneous
  Country: US (occurrence: US)
  Receive Date: 20130228
  Receipt Date: 20130325
  Transmission Date: 20140127
  Serious: Yes (Other)
  Sender: FDA-Public Use
  Company Number: US-ELI_LILLY_AND_COMPANY-US201302006995

PATIENT
  Age: 62 None
  Sex: Male

DRUGS (2)
  1. BYETTA [Suspect]
     Dosage: UNK
     Dates: end: 20130105
  2. SUNITINIB [Concomitant]
     Indication: RENAL CELL CARCINOMA
     Dosage: 50 MG, QD
     Route: 048
     Dates: start: 20120107, end: 20130105

REACTIONS (6)
  - Renal cell carcinoma [Unknown]
  - Cholelithiasis [Unknown]
  - Diverticulitis [Unknown]
  - Pancreatitis [Unknown]
  - Hypertension [Unknown]
  - Hyperlipidaemia [Unknown]
